FAERS Safety Report 12617814 (Version 1)
Quarter: 2016Q3

REPORT INFORMATION
  Report Type: Spontaneous
  Country: US (occurrence: None)
  Receive Date: 20160802
  Receipt Date: 20160802
  Transmission Date: 20161109
  Serious: No
  Sender: FDA-Public Use
  Company Number: None

PATIENT
  Sex: Female

DRUGS (2)
  1. WARFARIN [Suspect]
     Active Substance: WARFARIN
  2. AZATHIOPRINE. [Suspect]
     Active Substance: AZATHIOPRINE

REACTIONS (5)
  - Inhibitory drug interaction [None]
  - Muscle spasms [None]
  - Nausea [None]
  - Loose tooth [None]
  - Alopecia [None]
